FAERS Safety Report 11324623 (Version 1)
Quarter: 2015Q3

REPORT INFORMATION
  Report Type: Spontaneous
  Country: US (occurrence: US)
  Receive Date: 20150730
  Receipt Date: 20150730
  Transmission Date: 20151125
  Serious: No
  Sender: FDA-Public Use
  Company Number: US-009507513-1507USA010142

PATIENT
  Age: 19 Year
  Sex: Female
  Weight: 87.53 kg

DRUGS (1)
  1. NEXPLANON [Suspect]
     Active Substance: ETONOGESTREL
     Indication: CONTRACEPTION
     Dosage: 1 DF, UNK
     Route: 059
     Dates: start: 20140730

REACTIONS (4)
  - Device deployment issue [Not Recovered/Not Resolved]
  - Device breakage [Not Recovered/Not Resolved]
  - Implant site pain [Unknown]
  - Pregnancy with implant contraceptive [Unknown]

NARRATIVE: CASE EVENT DATE: 20140730
